FAERS Safety Report 8317673-3 (Version None)
Quarter: 2012Q2

REPORT INFORMATION
  Report Type: 
  Country: None (occurrence: None)
  Receive Date: 20120427
  Receipt Date: 20110505
  Transmission Date: 20120825
  Serious: No
  Sender: FDA-Public Use
  Company Number: US-GLAXOSMITHKLINE-A0926161A

PATIENT
  Age: 56 Year
  Sex: Female

DRUGS (6)
  1. LISINOPRIL [Concomitant]
  2. VITAMIN B-12 [Concomitant]
  3. AMERGE [Suspect]
     Indication: MIGRAINE
     Dosage: 1.25MG AS REQUIRED
     Route: 048
     Dates: start: 19980101
  4. MAGNESIUM [Concomitant]
  5. IMITREX INJECTION [Concomitant]
  6. DYAZIDE [Concomitant]

REACTIONS (2)
  - DRUG INEFFECTIVE [None]
  - PRODUCT QUALITY ISSUE [None]
